FAERS Safety Report 9416062 (Version 1)
Quarter: 2013Q3

REPORT INFORMATION
  Report Type: Spontaneous
  Country: CA (occurrence: None)
  Receive Date: 20130723
  Receipt Date: 20130723
  Transmission Date: 20140515
  Serious: Yes (Disabling)
  Sender: FDA-Public Use
  Company Number: None

PATIENT
  Age: 58 Year
  Sex: Male
  Weight: 87.09 kg

DRUGS (2)
  1. ATORVASTATIN [Suspect]
     Indication: BLOOD CHOLESTEROL ABNORMAL
     Route: 048
     Dates: start: 200706, end: 201306
  2. ATORVASTATIN [Suspect]
     Indication: MYOCARDIAL INFARCTION
     Route: 048
     Dates: start: 200706, end: 201306

REACTIONS (7)
  - Muscular weakness [None]
  - Pain in extremity [None]
  - Coordination abnormal [None]
  - Memory impairment [None]
  - Hypoaesthesia [None]
  - Paraesthesia [None]
  - Confusional state [None]
